FAERS Safety Report 11933835 (Version 2)
Quarter: 2016Q1

REPORT INFORMATION
  Report Type: Report from Study
  Country: JP (occurrence: JP)
  Receive Date: 20160121
  Receipt Date: 20160218
  Transmission Date: 20160526
  Serious: Yes (Other)
  Sender: FDA-Public Use
  Company Number: JP-WATSON-2016-00599

PATIENT
  Age: 78 Year
  Sex: Male

DRUGS (3)
  1. TADALAFIL [Concomitant]
     Active Substance: TADALAFIL
     Indication: LOWER URINARY TRACT SYMPTOMS
     Dosage: 5 MG, DAILY
     Route: 048
  2. UBRETID [Concomitant]
     Active Substance: DISTIGMINE BROMIDE
     Indication: LOWER URINARY TRACT SYMPTOMS
     Dosage: 5 MG, DAILY
     Route: 048
  3. RAPAFLO [Suspect]
     Active Substance: SILODOSIN
     Indication: DYSURIA
     Dosage: 8 MG, DAILY
     Route: 048
     Dates: start: 20150903, end: 20151005

REACTIONS (1)
  - No adverse event [Unknown]
